FAERS Safety Report 5821072-3 (Version None)
Quarter: 2008Q3

REPORT INFORMATION
  Report Type: 
  Country: None (occurrence: None)
  Receive Date: 20080724
  Receipt Date: 20080623
  Transmission Date: 20090109
  Serious: No
  Sender: FDA-Public Use
  Company Number: US-BAYER-200823627NA

PATIENT
  Age: 39 Year
  Sex: Female
  Weight: 54 kg

DRUGS (2)
  1. MIRENA [Suspect]
     Indication: CONTRACEPTION
     Route: 015
     Dates: start: 20080420, end: 20080519
  2. MIRENA [Suspect]
     Route: 015
     Dates: start: 20021219, end: 20071201

REACTIONS (7)
  - ALOPECIA [None]
  - CRYING [None]
  - MOOD SWINGS [None]
  - OVARIAN CYST [None]
  - PROCEDURAL PAIN [None]
  - RASH [None]
  - VAGINAL HAEMORRHAGE [None]
